FAERS Safety Report 4304508-9 (Version None)
Quarter: 2004Q1

REPORT INFORMATION
  Report Type: 
  Country: None (occurrence: None)
  Receive Date: 20040225
  Receipt Date: 20040225
  Transmission Date: 20041129
  Serious: No
  Sender: FDA-Public Use
  Company Number: None

PATIENT
  Sex: Female
  Weight: 50.8029 kg

DRUGS (1)
  1. ZOLOFT [Suspect]
     Indication: POSTPARTUM DEPRESSION
     Dosage: 1 TABLET ONCE A DAY ORAL
     Route: 048
     Dates: start: 20030819, end: 20040219

REACTIONS (2)
  - DIZZINESS [None]
  - NAUSEA [None]
